FAERS Safety Report 6600663-6 (Version None)
Quarter: 2010Q1

REPORT INFORMATION
  Report Type: 
  Country: None (occurrence: None)
  Receive Date: 20100223
  Receipt Date: 20100223
  Transmission Date: 20100710
  Serious: No
  Sender: FDA-Public Use
  Company Number: None

PATIENT
  Age: 33 Year
  Sex: Female
  Weight: 60.782 kg

DRUGS (1)
  1. TRAZODONE HCL [Suspect]
     Indication: INSOMNIA
     Dosage: 200 MG 1 X DAY AT NIGHT PO
     Route: 048
     Dates: start: 20061025, end: 20070131

REACTIONS (2)
  - AMNESIA [None]
  - INJURY [None]
